FAERS Safety Report 5162468-5 (Version None)
Quarter: 2006Q4

REPORT INFORMATION
  Report Type: 
  Country: None (occurrence: None)
  Receive Date: 20061129
  Receipt Date: 20061129
  Transmission Date: 20070319
  Serious: Yes (Hospitalization)
  Sender: FDA-Public Use
  Company Number: None

PATIENT
  Sex: Male
  Weight: 85.7298 kg

DRUGS (25)
  1. DOXIL [Suspect]
     Indication: PROSTATE CANCER
     Dosage: 60 MG DAY 1 Q 28 DAY IV DRIP
     Route: 041
     Dates: start: 20060727, end: 20061019
  2. TAXOTERE [Suspect]
     Indication: PROSTATE CANCER
     Dosage: 60 MG D 1,8,15 1 28 D IV DRIP
     Route: 041
     Dates: start: 20050727, end: 20061103
  3. MAXOXIDE [Concomitant]
  4. LOPERAMIDE [Concomitant]
  5. TRAZODONE HCL [Concomitant]
  6. PAXIL [Concomitant]
  7. GLUCOTROL XL [Concomitant]
  8. TOPROL OX [Concomitant]
  9. PRILOSEC [Concomitant]
  10. COUMADIN [Concomitant]
  11. CRESTOR [Concomitant]
  12. LEVOXYL [Concomitant]
  13. LASIX [Concomitant]
  14. POTASSIUM KCL [Concomitant]
  15. ASPIRIN [Concomitant]
  16. LISINOPRIL [Concomitant]
  17. MEGESTROL AC [Concomitant]
  18. VITABIN B [Concomitant]
  19. VICTAMIN C [Concomitant]
  20. CRITRACAL [Concomitant]
  21. MS CONTIN [Concomitant]
  22. HYDROCODONE [Concomitant]
  23. PHENERGAN [Concomitant]
  24. UROCET [Concomitant]
  25. DULCOLAX [Concomitant]

REACTIONS (2)
  - CATHETER SITE HAEMORRHAGE [None]
  - INTERNATIONAL NORMALISED RATIO INCREASED [None]
